FAERS Safety Report 4915269-4 (Version None)
Quarter: 2006Q1

REPORT INFORMATION
  Report Type: 
  Country: None (occurrence: None)
  Receive Date: 20060216
  Receipt Date: 20060216
  Transmission Date: 20060701
  Serious: Yes (Hospitalization)
  Sender: FDA-Public Use
  Company Number: None

PATIENT
  Sex: Female
  Weight: 63.05 kg

DRUGS (5)
  1. ROBAXIN [Suspect]
     Indication: NECK INJURY
     Dosage: 1500MG PO X1 DOSE
     Route: 048
     Dates: start: 20051028
  2. IBUPROFEN [Concomitant]
  3. AMBIEN [Concomitant]
  4. VICODIN [Concomitant]
  5. ALBUTEROL [Concomitant]

REACTIONS (2)
  - DYSPNOEA [None]
  - NIGHTMARE [None]
